FAERS Safety Report 5651335-6 (Version None)
Quarter: 2008Q1

REPORT INFORMATION
  Report Type: 
  Country: None (occurrence: None)
  Receive Date: 20080305
  Receipt Date: 20080225
  Transmission Date: 20080703
  Serious: Yes (Other)
  Sender: FDA-Public Use
  Company Number: ZA-JNJFOC-20080201034

PATIENT
  Sex: Male
  Weight: 83 kg

DRUGS (3)
  1. CONCERTA [Suspect]
     Indication: ATTENTION DEFICIT/HYPERACTIVITY DISORDER
  2. EPILIM [Concomitant]
  3. EPILIM [Concomitant]

REACTIONS (1)
  - CONVULSION [None]
